FAERS Safety Report 5606716-3 (Version None)
Quarter: 2008Q1

REPORT INFORMATION
  Report Type: 
  Country: None (occurrence: None)
  Receive Date: 20080129
  Receipt Date: 20080124
  Transmission Date: 20080703
  Serious: Yes (Hospitalization)
  Sender: FDA-Public Use
  Company Number: US-ALLERGAN-0800904US

PATIENT
  Sex: Male

DRUGS (6)
  1. BOTOX [Suspect]
     Indication: SALIVARY HYPERSECRETION
     Dosage: 60 UNITS, SINGLE
     Route: 050
     Dates: start: 20080124, end: 20080124
  2. LISINOPRIL [Concomitant]
     Indication: DRUG USE FOR UNKNOWN INDICATION
  3. LOPRESSOR [Concomitant]
     Indication: DRUG USE FOR UNKNOWN INDICATION
  4. UNASYN [Concomitant]
     Indication: DRUG USE FOR UNKNOWN INDICATION
  5. IV FLUIDS [Concomitant]
     Indication: DRUG USE FOR UNKNOWN INDICATION
  6. NUTREN [Concomitant]
     Indication: DRUG USE FOR UNKNOWN INDICATION

REACTIONS (1)
  - BRADYCARDIA [None]
